FAERS Safety Report 6662241-2 (Version None)
Quarter: 2010Q1

REPORT INFORMATION
  Report Type: 
  Country: None (occurrence: None)
  Receive Date: 20100331
  Receipt Date: 20100324
  Transmission Date: 20100710
  Serious: Yes (Hospitalization, Other)
  Sender: FDA-Public Use
  Company Number: US-PFIZER INC-2010029136

PATIENT
  Sex: Female
  Weight: 101 kg

DRUGS (6)
  1. CHANTIX [Suspect]
     Indication: SMOKING CESSATION THERAPY
     Dosage: 0.5 MG, 1X/DAY
     Route: 048
     Dates: start: 20100301, end: 20100301
  2. CHANTIX [Suspect]
     Dosage: 0.5 MG, 2X/DAY
     Dates: start: 20100301
  3. CHANTIX [Suspect]
     Dosage: 1 MG, 2X/DAY
     Dates: start: 20100308, end: 20100323
  4. CYMBALTA [Concomitant]
     Indication: BIPOLAR DISORDER
  5. NORCO [Concomitant]
     Indication: BACK PAIN
     Dosage: 10 MG, UNK
  6. ROBAXIN [Concomitant]
     Indication: BACK PAIN
     Dosage: 1000 MG, 2X/DAY

REACTIONS (11)
  - ANGER [None]
  - ANXIETY [None]
  - DRUG DOSE OMISSION [None]
  - FEAR [None]
  - GASTROINTESTINAL INFECTION [None]
  - HOSTILITY [None]
  - HYPERSENSITIVITY [None]
  - NEOPLASM [None]
  - OEDEMA PERIPHERAL [None]
  - RASH [None]
  - TREATMENT NONCOMPLIANCE [None]
